FAERS Safety Report 21580959 (Version 3)
Quarter: 2022Q4

REPORT INFORMATION
  Report Type: Spontaneous
  Country: TW (occurrence: TW)
  Receive Date: 20221111
  Receipt Date: 20221125
  Transmission Date: 20230112
  Serious: Yes (Hospitalization)
  Sender: FDA-Public Use
  Company Number: TW-JNJFOC-20221111778

PATIENT
  Age: 22 Year
  Sex: Female
  Weight: 69.4 kg

DRUGS (16)
  1. SIMPONI [Suspect]
     Active Substance: GOLIMUMAB
     Indication: Ankylosing spondylitis
     Route: 058
     Dates: start: 20220107
  2. ESTAZOLAM [Concomitant]
     Active Substance: ESTAZOLAM
     Route: 065
     Dates: start: 20221102
  3. UTAPINE [Concomitant]
     Indication: Mental disorder
     Dates: start: 20221102
  4. UTAPINE [Concomitant]
     Indication: Bipolar disorder
  5. ZOPICLONE [Concomitant]
     Active Substance: ZOPICLONE
     Dates: start: 20221102
  6. CYMBALTA [Concomitant]
     Active Substance: DULOXETINE HYDROCHLORIDE
     Indication: Major depression
     Dates: start: 20221102
  7. CYMBALTA [Concomitant]
     Active Substance: DULOXETINE HYDROCHLORIDE
     Indication: Generalised anxiety disorder
  8. CYMBALTA [Concomitant]
     Active Substance: DULOXETINE HYDROCHLORIDE
     Indication: Diabetes mellitus
  9. CYMBALTA [Concomitant]
     Active Substance: DULOXETINE HYDROCHLORIDE
     Indication: Neuralgia
  10. CYMBALTA [Concomitant]
     Active Substance: DULOXETINE HYDROCHLORIDE
     Indication: Fibromyalgia
  11. QUETIAPINE [Concomitant]
     Active Substance: QUETIAPINE
     Indication: Schizophrenia
  12. QUETIAPINE [Concomitant]
     Active Substance: QUETIAPINE
     Indication: Depression
  13. QUETIAPINE [Concomitant]
     Active Substance: QUETIAPINE
     Indication: Mania
  14. QUETIAPINE [Concomitant]
     Active Substance: QUETIAPINE
     Indication: Bipolar disorder
  15. DULOXETINE [Concomitant]
     Active Substance: DULOXETINE
     Indication: Depression
  16. DULOXETINE [Concomitant]
     Active Substance: DULOXETINE
     Indication: Anxiety disorder

REACTIONS (2)
  - Hospitalisation [Unknown]
  - Suicide attempt [Unknown]

NARRATIVE: CASE EVENT DATE: 20220819
